FAERS Safety Report 14760011 (Version 3)
Quarter: 2020Q3

REPORT INFORMATION
  Report Type: Spontaneous
  Country: US (occurrence: US)
  Receive Date: 20180413
  Receipt Date: 20200715
  Transmission Date: 20201102
  Serious: Yes (Death, Hospitalization, Other)
  Sender: FDA-Public Use
  Company Number: US-009507513-1804USA006020

PATIENT
  Sex: Female
  Weight: 107.03 kg

DRUGS (6)
  1. JANUVIA [Suspect]
     Active Substance: SITAGLIPTIN PHOSPHATE
     Dosage: 50 MILLIGRAM, ONCE DAILY
     Route: 048
     Dates: start: 20140506, end: 20160114
  2. VICTOZA [Suspect]
     Active Substance: LIRAGLUTIDE
     Dosage: UNK
     Dates: start: 20140516, end: 201601
  3. JANUVIA [Suspect]
     Active Substance: SITAGLIPTIN PHOSPHATE
     Dosage: 25 MILLIGRAM, ONCE DAILY
     Route: 048
     Dates: start: 20130208, end: 20140803
  4. JANUVIA [Suspect]
     Active Substance: SITAGLIPTIN PHOSPHATE
     Dosage: 25 MILLIGRAM, ONCE DAILY
     Route: 048
     Dates: start: 20090608, end: 20120309
  5. BYETTA [Suspect]
     Active Substance: EXENATIDE
     Dosage: 10 MICROGRAM, TIWCE DAILY
     Dates: start: 20130208, end: 201403
  6. JANUVIA [Suspect]
     Active Substance: SITAGLIPTIN PHOSPHATE
     Dosage: 50 MILLIGRAM, ONCE DAILY
     Route: 048
     Dates: start: 20120306, end: 20130130

REACTIONS (6)
  - Hepatic cancer [Unknown]
  - Anxiety [Unknown]
  - Obesity [Not Recovered/Not Resolved]
  - Pancreatic carcinoma [Fatal]
  - Hypertension [Unknown]
  - Hypokalaemia [Unknown]

NARRATIVE: CASE EVENT DATE: 2015
